FAERS Safety Report 25461171 (Version 1)
Quarter: 2025Q2

REPORT INFORMATION
  Report Type: Spontaneous
  Country: GB (occurrence: GB)
  Receive Date: 20250620
  Receipt Date: 20250620
  Transmission Date: 20250716
  Serious: Yes (Hospitalization, Disabling, Other)
  Sender: JUBILANT
  Company Number: None

PATIENT
  Age: 54 Year
  Sex: Male
  Weight: 86 kg

DRUGS (59)
  1. PREGABALIN [Suspect]
     Active Substance: PREGABALIN
     Indication: Neuralgia
     Dosage: 50 MG, 2 TIMES PER DAY
     Route: 065
     Dates: start: 20220803
  2. PREGABALIN [Suspect]
     Active Substance: PREGABALIN
     Dosage: 150 MG, 3 TIMES PER DAY
     Route: 065
  3. PREGABALIN [Suspect]
     Active Substance: PREGABALIN
     Dosage: 250 MG, 2 TIMES PER DAY
     Route: 065
     Dates: start: 20221119, end: 20221126
  4. PREGABALIN [Suspect]
     Active Substance: PREGABALIN
     Dosage: 100 MG, 2 TIMES PER DAY
     Route: 065
  5. PREGABALIN [Suspect]
     Active Substance: PREGABALIN
     Dosage: 300 MG, 2 TIMES PER DAY
     Route: 065
     Dates: start: 20221127
  6. PREGABALIN [Suspect]
     Active Substance: PREGABALIN
     Route: 065
     Dates: start: 20221111, end: 20221118
  7. COMIRNATY (TOZINAMERAN) [Suspect]
     Active Substance: TOZINAMERAN
     Indication: Adverse drug reaction
     Route: 065
     Dates: start: 20211215
  8. AMITRIPTYLINE [Suspect]
     Active Substance: AMITRIPTYLINE
     Indication: Neuralgia
     Dosage: 10 MG, ONCE PER DAY (AT NIGHT)
     Route: 065
     Dates: start: 20220115
  9. OXCARBAZEPINE [Suspect]
     Active Substance: OXCARBAZEPINE
     Indication: Product used for unknown indication
     Dosage: 1200 MG, ONCE PER DAY
     Route: 065
     Dates: start: 20221013, end: 20221207
  10. OXYCODONE HYDROCHLORIDE [Suspect]
     Active Substance: OXYCODONE HYDROCHLORIDE
     Indication: Product used for unknown indication
     Dosage: 10 MG, 4 TIMES PER DAY
     Route: 048
     Dates: start: 20220803, end: 20230727
  11. PRIVIGEN [Suspect]
     Active Substance: HUMAN IMMUNOGLOBULIN G
     Indication: Product used for unknown indication
     Route: 065
     Dates: start: 20240115, end: 20240117
  12. PRIVIGEN [Suspect]
     Active Substance: HUMAN IMMUNOGLOBULIN G
     Route: 042
     Dates: start: 20231124, end: 20231126
  13. PREDNISOLONE [Suspect]
     Active Substance: PREDNISOLONE
     Indication: Product used for unknown indication
     Dosage: 8 DOSAGE FORM, ONCE PER DAY
     Route: 048
     Dates: start: 20230911, end: 20230918
  14. PREDNISOLONE [Suspect]
     Active Substance: PREDNISOLONE
     Dosage: 40 MG, ONCE PER DAY
     Route: 065
     Dates: start: 20220328, end: 20220403
  15. PREDNISOLONE [Suspect]
     Active Substance: PREDNISOLONE
     Route: 065
  16. VYEPTI [Suspect]
     Active Substance: EPTINEZUMAB-JJMR
     Indication: Product used for unknown indication
     Route: 065
     Dates: start: 20230814, end: 20230814
  17. CARBAMAZEPINE [Concomitant]
     Active Substance: CARBAMAZEPINE
     Indication: Neuralgia
     Dosage: 400 MG, 2 TIMES PER DAY
     Route: 065
     Dates: start: 20220404
  18. CARBAMAZEPINE [Concomitant]
     Active Substance: CARBAMAZEPINE
     Dosage: 200 MG, 2 TIMES PER DAY
     Route: 065
     Dates: start: 20220420, end: 20220503
  19. BACLOFEN [Concomitant]
     Active Substance: BACLOFEN
     Indication: Neuralgia
     Dosage: 10 MG, 3 TIMES PER DAY
     Route: 065
     Dates: end: 20220803
  20. BACLOFEN [Concomitant]
     Active Substance: BACLOFEN
     Dosage: 20 MG, 3 TIMES PER DAY
     Route: 065
  21. PHENYTOIN [Concomitant]
     Active Substance: PHENYTOIN
     Indication: Product used for unknown indication
     Dosage: 100 MG, 3 TIMES PER DAY
     Route: 065
     Dates: start: 20220526
  22. PHENYTOIN [Concomitant]
     Active Substance: PHENYTOIN
     Route: 065
  23. COCODAMOL [Concomitant]
     Active Substance: ACETAMINOPHEN\CODEINE PHOSPHATE
     Indication: Product used for unknown indication
     Route: 065
     Dates: start: 20220217
  24. COCODAMOL [Concomitant]
     Active Substance: ACETAMINOPHEN\CODEINE PHOSPHATE
     Dates: start: 20230911
  25. TRAMCET [Concomitant]
     Active Substance: ACETAMINOPHEN\TRAMADOL
     Indication: Product used for unknown indication
     Route: 065
     Dates: start: 20220413
  26. OMEPRAZOLE [Concomitant]
     Active Substance: OMEPRAZOLE
     Indication: Product used for unknown indication
     Dosage: 20 MG, 2 TIMES PER DAY (WHEN REQQUIRED)
     Route: 065
     Dates: start: 20230911
  27. METHYLCOBALAMIN [Concomitant]
     Active Substance: METHYLCOBALAMIN
     Indication: Product used for unknown indication
     Dosage: 500 ?G, ONCE PER DAY
     Route: 060
  28. LAMOTRIGINE [Concomitant]
     Active Substance: LAMOTRIGINE
     Indication: Pain
     Dosage: 25 MG, 2 TIMES PER DAY
     Route: 065
     Dates: start: 20221217, end: 20221224
  29. LAMOTRIGINE [Concomitant]
     Active Substance: LAMOTRIGINE
     Dosage: 50 MG, 2 TIMES PER DAY
     Route: 065
     Dates: start: 20221231, end: 20230107
  30. LAMOTRIGINE [Concomitant]
     Active Substance: LAMOTRIGINE
     Dosage: 75 MG, 2 TIMES PER DAY
     Route: 065
     Dates: start: 20230114, end: 20230121
  31. LAMOTRIGINE [Concomitant]
     Active Substance: LAMOTRIGINE
     Dosage: 100 MG, 2 TIMES PER DAY
     Route: 065
     Dates: start: 20230128, end: 20230203
  32. LAMOTRIGINE [Concomitant]
     Active Substance: LAMOTRIGINE
     Route: 065
     Dates: start: 20230204, end: 20230210
  33. LAMOTRIGINE [Concomitant]
     Active Substance: LAMOTRIGINE
     Dosage: 175 MG, 2 TIMES PER DAY
     Route: 065
     Dates: start: 20230223, end: 20230301
  34. LAMOTRIGINE [Concomitant]
     Active Substance: LAMOTRIGINE
     Dosage: 200 MG, 2 TIMES PER DAY
     Route: 065
     Dates: start: 20230302
  35. LAMOTRIGINE [Concomitant]
     Active Substance: LAMOTRIGINE
     Dosage: 150 MG, 2 TIMES PER DAY
     Route: 065
     Dates: start: 20230211, end: 20230217
  36. MIRTAZAPINE [Concomitant]
     Active Substance: MIRTAZAPINE
     Indication: Depression
     Dosage: 30 MG, ONCE PER DAY (AT NIGHT)
     Route: 048
     Dates: start: 20230412
  37. BUPRENORPHINE [Concomitant]
     Active Substance: BUPRENORPHINE
     Indication: Product used for unknown indication
     Route: 062
  38. NALTREXONE [Concomitant]
     Active Substance: NALTREXONE
     Indication: Product used for unknown indication
     Dosage: 5 MG, ONCE PER DAY (LOW DOSE)
     Route: 065
  39. NAPROXEN [Concomitant]
     Active Substance: NAPROXEN
     Indication: Product used for unknown indication
     Route: 065
  40. ONDANSETRON [Concomitant]
     Active Substance: ONDANSETRON
     Indication: Nausea
     Dosage: 4 MG, 3 TIMES PER DAY (AS NECESSARY)
     Route: 065
  41. HYPROMELLOSES [Concomitant]
     Active Substance: HYPROMELLOSES
     Indication: Product used for unknown indication
  42. LACOSAMIDE [Concomitant]
     Active Substance: LACOSAMIDE
     Indication: Product used for unknown indication
     Dosage: 25 MG, ONCE PER DAY
     Route: 065
     Dates: start: 20231023, end: 20231101
  43. LACOSAMIDE [Concomitant]
     Active Substance: LACOSAMIDE
     Dosage: 25 MG, 2 TIMES PER DAY
     Route: 065
     Dates: start: 20231102, end: 20241111
  44. LACOSAMIDE [Concomitant]
     Active Substance: LACOSAMIDE
     Dosage: 50 MG, 2 TIMES PER DAY
     Route: 065
     Dates: start: 20231112, end: 20231121
  45. LACOSAMIDE [Concomitant]
     Active Substance: LACOSAMIDE
     Dosage: 75 MG, 2 TIMES PER DAY
     Route: 065
     Dates: start: 20231122, end: 20231201
  46. LACOSAMIDE [Concomitant]
     Active Substance: LACOSAMIDE
     Dosage: 100 MG, 2 TIMES PER DAY
     Route: 065
     Dates: start: 20231202, end: 20231211
  47. DIAZEPAM [Concomitant]
     Active Substance: DIAZEPAM
     Indication: Product used for unknown indication
     Dosage: 2 MG, 2 TIMES PER DAY (AS REQUIRED)
     Route: 065
  48. FERROUS FUMARATE [Concomitant]
     Active Substance: FERROUS FUMARATE
     Indication: Product used for unknown indication
     Dosage: 305 MG, ONCE PER DAY
     Route: 048
  49. DULOXETINE [Concomitant]
     Active Substance: DULOXETINE
     Indication: Product used for unknown indication
     Route: 065
     Dates: start: 20230911
  50. DULOXETINE [Concomitant]
     Active Substance: DULOXETINE
     Indication: Product used for unknown indication
     Route: 065
     Dates: start: 20230911
  51. ACYCLOVIR [Concomitant]
     Active Substance: ACYCLOVIR
     Indication: Product used for unknown indication
     Dosage: 800 MG, ONCE PER DAY
     Route: 065
     Dates: start: 20220328, end: 20220403
  52. BOTOX [Concomitant]
     Active Substance: ONABOTULINUMTOXINA
     Indication: Product used for unknown indication
     Route: 065
     Dates: start: 20230404, end: 20230517
  53. LIDOCAINE [Concomitant]
     Active Substance: LIDOCAINE
     Indication: Product used for unknown indication
     Route: 065
     Dates: start: 20230316, end: 20230316
  54. LIDOCAINE [Concomitant]
     Active Substance: LIDOCAINE
     Route: 062
     Dates: start: 20230428
  55. MAGNESIUM [Concomitant]
     Active Substance: MAGNESIUM
     Indication: Product used for unknown indication
     Route: 065
     Dates: start: 20230316, end: 20230316
  56. GABAPENTIN [Concomitant]
     Active Substance: GABAPENTIN
     Indication: Product used for unknown indication
     Dosage: 300 MG, 3 TIMES PER DAY
     Route: 065
     Dates: start: 20220217, end: 20220227
  57. GABAPENTIN [Concomitant]
     Active Substance: GABAPENTIN
     Dosage: 900 MG, 3 TIMES PER DAY
     Route: 065
     Dates: start: 20220413
  58. GABAPENTIN [Concomitant]
     Active Substance: GABAPENTIN
     Dosage: 600 MG, 3 TIMES PER DAY
     Route: 065
     Dates: start: 20220328, end: 20220412
  59. ZOPICLONE [Concomitant]
     Active Substance: ZOPICLONE
     Indication: Insomnia
     Route: 065

REACTIONS (47)
  - COVID-19 [Unknown]
  - Neuropathy peripheral [Not Recovered/Not Resolved]
  - Feeling of despair [Not Recovered/Not Resolved]
  - Toothache [Not Recovered/Not Resolved]
  - Urinary tract infection [Not Recovered/Not Resolved]
  - Hepatic function abnormal [Not Recovered/Not Resolved]
  - Electric shock sensation [Not Recovered/Not Resolved]
  - Tinnitus [Not Recovered/Not Resolved]
  - Mental impairment [Not Recovered/Not Resolved]
  - Immunosuppression [Unknown]
  - Pyrexia [Not Recovered/Not Resolved]
  - Hypothyroidism [Not Recovered/Not Resolved]
  - Dizziness [Not Recovered/Not Resolved]
  - Nausea [Not Recovered/Not Resolved]
  - White blood cell disorder [Not Recovered/Not Resolved]
  - Photophobia [Not Recovered/Not Resolved]
  - Spinal pain [Not Recovered/Not Resolved]
  - Lip swelling [Not Recovered/Not Resolved]
  - Urinary bladder haemorrhage [Unknown]
  - Trigeminal neuralgia [Not Recovered/Not Resolved]
  - Haematological infection [Not Recovered/Not Resolved]
  - Amnesia [Not Recovered/Not Resolved]
  - Blindness [Not Recovered/Not Resolved]
  - Brain fog [Not Recovered/Not Resolved]
  - Headache [Not Recovered/Not Resolved]
  - Depression [Not Recovered/Not Resolved]
  - Gait disturbance [Not Recovered/Not Resolved]
  - Pain in extremity [Not Recovered/Not Resolved]
  - Suicidal ideation [Not Recovered/Not Resolved]
  - Mouth swelling [Not Recovered/Not Resolved]
  - Dyspnoea [Not Recovered/Not Resolved]
  - Punctate keratitis [Unknown]
  - Facial pain [Not Recovered/Not Resolved]
  - Lethargy [Not Recovered/Not Resolved]
  - Hyponatraemia [Not Recovered/Not Resolved]
  - Somnolence [Not Recovered/Not Resolved]
  - Confusional state [Not Recovered/Not Resolved]
  - Chest pain [Unknown]
  - Cough [Unknown]
  - Flushing [Unknown]
  - Influenza like illness [Recovered/Resolved]
  - Paraesthesia [Not Recovered/Not Resolved]
  - Carpal tunnel syndrome [Unknown]
  - Dry eye [Unknown]
  - Rash vesicular [Unknown]
  - Hypoaesthesia [Not Recovered/Not Resolved]
  - Anxiety [Unknown]

NARRATIVE: CASE EVENT DATE: 20211217
